FAERS Safety Report 19925991 (Version 3)
Quarter: 2022Q3

REPORT INFORMATION
  Report Type: Report from Study
  Country: US (occurrence: US)
  Receive Date: 20211007
  Receipt Date: 20220720
  Transmission Date: 20221027
  Serious: No
  Sender: FDA-Public Use
  Company Number: NVSC2021US229072

PATIENT
  Age: 1 Year
  Sex: Female

DRUGS (2)
  1. ILARIS [Suspect]
     Active Substance: CANAKINUMAB
     Indication: Pyrexia
     Dosage: 90 MG, BIW
     Route: 058
     Dates: start: 20210121
  2. ILARIS [Suspect]
     Active Substance: CANAKINUMAB
     Dosage: 40 MG, QMO
     Route: 058
     Dates: start: 20210124

REACTIONS (3)
  - COVID-19 [Recovered/Resolved]
  - Nasopharyngitis [Unknown]
  - Product use issue [Unknown]

NARRATIVE: CASE EVENT DATE: 20220714
